FAERS Safety Report 21099641 (Version 1)
Quarter: 2022Q3

REPORT INFORMATION
  Report Type: Spontaneous
  Country: FR (occurrence: FR)
  Receive Date: 20220719
  Receipt Date: 20220719
  Transmission Date: 20221027
  Serious: Yes (Hospitalization, Other)
  Sender: FDA-Public Use
  Company Number: None

PATIENT
  Age: 96 Year
  Sex: Male

DRUGS (10)
  1. PAXLOVID [Suspect]
     Active Substance: NIRMATRELVIR\RITONAVIR
     Indication: COVID-19 treatment
     Dosage: UNK
     Route: 048
     Dates: start: 20220630, end: 20220702
  2. LOSARTAN [Suspect]
     Active Substance: LOSARTAN
     Dosage: 50 MG, 1X/DAY
     Route: 048
     Dates: start: 20220701, end: 20220702
  3. TELMISARTAN [Suspect]
     Active Substance: TELMISARTAN
     Dosage: 80 MG, 1X/DAY
     Route: 048
     Dates: end: 20220630
  4. HYDROCHLOROTHIAZIDE [Suspect]
     Active Substance: HYDROCHLOROTHIAZIDE
     Dosage: 12.5 MG, 1X/DAY
     Route: 048
     Dates: end: 20220702
  5. INNOHEP [Concomitant]
     Active Substance: TINZAPARIN SODIUM
     Dosage: 13000 IU, 1X/DAY
     Route: 058
     Dates: start: 20220701
  6. BISOPROLOL [Concomitant]
     Active Substance: BISOPROLOL
     Dosage: 1.25 MG, 1X/DAY
     Route: 048
  7. CLONIDINE RPG [Concomitant]
     Dosage: 0.5 DF, 3X/DAY
     Route: 048
  8. ESOMEPRAZOLE [Concomitant]
     Active Substance: ESOMEPRAZOLE
     Dosage: 40 MG, 1X/DAY
     Route: 048
     Dates: end: 20220630
  9. LANSOPRAZOLE [Concomitant]
     Active Substance: LANSOPRAZOLE
     Dosage: 30 MG, 1X/DAY
     Route: 048
     Dates: start: 20220701
  10. ELIQUIS [Concomitant]
     Active Substance: APIXABAN
     Dosage: 5 MG, DAILY
     Route: 048
     Dates: end: 20220630

REACTIONS (1)
  - Acute kidney injury [Recovering/Resolving]

NARRATIVE: CASE EVENT DATE: 20220702
